FAERS Safety Report 11084276 (Version 2)
Quarter: 2015Q2

REPORT INFORMATION
  Report Type: Spontaneous
  Country: US (occurrence: US)
  Receive Date: 20150502
  Receipt Date: 20150525
  Transmission Date: 20150821
  Serious: No
  Sender: FDA-Public Use
  Company Number: US-JNJFOC-20150401479

PATIENT
  Sex: Female
  Weight: 86.18 kg

DRUGS (2)
  1. OLYSIO [Suspect]
     Active Substance: SIMEPREVIR
     Indication: HEPATITIS
     Route: 048
     Dates: start: 20140903, end: 20141124
  2. SOVALDI [Suspect]
     Active Substance: SOFOSBUVIR
     Indication: HEPATITIS
     Route: 048
     Dates: start: 20140903, end: 20141124

REACTIONS (6)
  - Adverse drug reaction [Not Recovered/Not Resolved]
  - Scar [Not Recovered/Not Resolved]
  - Blister [Not Recovered/Not Resolved]
  - Impaired healing [Recovered/Resolved]
  - Infection [Recovered/Resolved]
  - Skin lesion [Not Recovered/Not Resolved]
